FAERS Safety Report 18090633 (Version 1)
Quarter: 2020Q3

REPORT INFORMATION
  Report Type: Other
  Country: CA (occurrence: CA)
  Receive Date: 20200730
  Receipt Date: 20200730
  Transmission Date: 20201103
  Serious: Yes (Other)
  Sender: FDA-Public Use
  Company Number: CA-APOTEX-2020AP014446

PATIENT
  Sex: Female

DRUGS (5)
  1. DESMOPRESSIN [Concomitant]
     Active Substance: DESMOPRESSIN
     Indication: PRODUCT USED FOR UNKNOWN INDICATION
     Dosage: UNK
     Route: 065
  2. AZATHIOPRINE. [Suspect]
     Active Substance: AZATHIOPRINE
     Indication: PRODUCT USED FOR UNKNOWN INDICATION
     Dosage: UNK
     Route: 065
  3. PREDNISONE. [Concomitant]
     Active Substance: PREDNISONE
     Indication: PRODUCT USED FOR UNKNOWN INDICATION
     Dosage: 15 MILLIGRAM, Q.O.D.
     Route: 065
  4. PREDNISONE. [Concomitant]
     Active Substance: PREDNISONE
     Dosage: 10 MILLIGRAM, Q.O.WK.
     Route: 065
  5. MYCOPHENOLATE MOFETIL. [Suspect]
     Active Substance: MYCOPHENOLATE MOFETIL
     Indication: PRODUCT USED FOR UNKNOWN INDICATION
     Dosage: UNK
     Route: 065

REACTIONS (3)
  - Headache [Unknown]
  - Pituitary tumour benign [Unknown]
  - Gastrointestinal disorder [Unknown]
